FAERS Safety Report 7029732-6 (Version None)
Quarter: 2010Q4

REPORT INFORMATION
  Report Type: 
  Country: None (occurrence: None)
  Receive Date: 20101005
  Receipt Date: 20101005
  Transmission Date: 20110411
  Serious: Yes (Disabling, Other)
  Sender: FDA-Public Use
  Company Number: None

PATIENT
  Age: 36 Year
  Sex: Male
  Weight: 81.6475 kg

DRUGS (1)
  1. OXYCODONE HCL [Suspect]
     Indication: SURGERY
     Dosage: 1 TABLET TWICE DAILY
     Dates: start: 20100928, end: 20101004

REACTIONS (5)
  - BODY TEMPERATURE INCREASED [None]
  - DRUG INEFFECTIVE [None]
  - INJURY [None]
  - MUSCLE SPASMS [None]
  - PRODUCT FORMULATION ISSUE [None]
